FAERS Safety Report 8561217-8 (Version None)
Quarter: 2012Q3

REPORT INFORMATION
  Report Type: 
  Country: None (occurrence: None)
  Receive Date: 20120802
  Receipt Date: 20120725
  Transmission Date: 20120928
  Serious: Yes (Hospitalization)
  Sender: FDA-Public Use
  Company Number: GB-JNJFOC-20120714381

PATIENT
  Age: 40 Year
  Sex: Male
  Weight: 76.7 kg

DRUGS (3)
  1. REMICADE [Suspect]
     Route: 042
     Dates: start: 20090720
  2. REMICADE [Suspect]
     Indication: CROHN'S DISEASE
     Route: 042
     Dates: start: 20080112
  3. REMICADE [Suspect]
     Dosage: HR/MIN: 16:20
     Route: 042
     Dates: start: 20070313

REACTIONS (1)
  - RESECTION OF RECTUM [None]
